FAERS Safety Report 5897687-3 (Version None)
Quarter: 2008Q3

REPORT INFORMATION
  Report Type: 
  Country: None (occurrence: None)
  Receive Date: 20080924
  Receipt Date: 20080924
  Transmission Date: 20090109
  Serious: Yes (Other)
  Sender: FDA-Public Use
  Company Number: None

PATIENT
  Age: 47 Year
  Sex: Female
  Weight: 113.3993 kg

DRUGS (2)
  1. OXYCODONE AND ACETAMINOPHEN [Suspect]
     Indication: PERICARDIAL EXCISION
     Dosage: 5-325 MG 1-2 EVERY 3-4 HOURS PO
     Route: 048
     Dates: start: 20080817, end: 20080905
  2. OXYCODONE AND ACETAMINOPHEN [Suspect]
     Indication: POSTOPERATIVE ANALGESIA
     Dosage: 5-325 MG 1-2 EVERY 3-4 HOURS PO
     Route: 048
     Dates: start: 20080817, end: 20080905

REACTIONS (8)
  - CHILLS [None]
  - CRYING [None]
  - DRUG WITHDRAWAL SYNDROME [None]
  - FEELING ABNORMAL [None]
  - IMPAIRED DRIVING ABILITY [None]
  - TREMOR [None]
  - VISION BLURRED [None]
  - VISUAL IMPAIRMENT [None]
